FAERS Safety Report 17178776 (Version 3)
Quarter: 2020Q1

REPORT INFORMATION
  Report Type: Spontaneous
  Country: JP (occurrence: JP)
  Receive Date: 20191219
  Receipt Date: 20200203
  Transmission Date: 20200409
  Serious: Yes (Death, Other)
  Sender: FDA-Public Use
  Company Number: JP-JAZZ-2019-JP-017577

PATIENT
  Age: 2 Year
  Sex: Male
  Weight: 11 kg

DRUGS (3)
  1. VANCOMYCIN HYDROCHLORIDE. [Concomitant]
     Active Substance: VANCOMYCIN HYDROCHLORIDE
     Indication: PRODUCT USED FOR UNKNOWN INDICATION
  2. CEFEPIME DIHYDROCHLORIDE [Concomitant]
     Active Substance: CEFEPIME HYDROCHLORIDE
     Indication: PRODUCT USED FOR UNKNOWN INDICATION
  3. DEFITELIO [Suspect]
     Active Substance: DEFIBROTIDE SODIUM
     Indication: PRODUCT USED FOR UNKNOWN INDICATION
     Dosage: 25 MG/KG/DAY
     Route: 042
     Dates: start: 20191203, end: 20191214

REACTIONS (7)
  - Infection [Fatal]
  - Septic shock [Fatal]
  - Engraft failure [Fatal]
  - Hypotension [Fatal]
  - Venoocclusive liver disease [Fatal]
  - Cardiac arrest [Fatal]
  - Hepatic failure [Fatal]

NARRATIVE: CASE EVENT DATE: 201912
